FAERS Safety Report 14519791 (Version 1)
Quarter: 2018Q1

REPORT INFORMATION
  Report Type: Spontaneous
  Country: NL (occurrence: NL)
  Receive Date: 20180212
  Receipt Date: 20180212
  Transmission Date: 20180509
  Serious: Yes (Death, Hospitalization)
  Sender: FDA-Public Use
  Company Number: NL-LPDUSPRD-20180134

PATIENT
  Age: 72 Year
  Sex: Female
  Weight: 100 kg

DRUGS (1)
  1. FERINJECT [Suspect]
     Active Substance: FERRIC CARBOXYMALTOSE
     Dosage: 1000 MG,1 IN 1 TOTAL
     Route: 041
     Dates: start: 20180117

REACTIONS (7)
  - Renal failure [Fatal]
  - Death [Fatal]
  - Cardiac failure [Fatal]
  - Cardiogenic shock [Fatal]
  - Ischaemic hepatitis [Fatal]
  - Dyspnoea [Fatal]
  - Infection [Fatal]

NARRATIVE: CASE EVENT DATE: 201801
